APPROVED DRUG PRODUCT: MINOXIDIL (FOR WOMEN)
Active Ingredient: MINOXIDIL
Strength: 2%
Dosage Form/Route: SOLUTION;TOPICAL
Application: A074924 | Product #002
Applicant: APOTEX INC
Approved: Apr 29, 1998 | RLD: No | RS: No | Type: DISCN